FAERS Safety Report 19402976 (Version 1)
Quarter: 2021Q2

REPORT INFORMATION
  Report Type: Spontaneous
  Country: GB (occurrence: GB)
  Receive Date: 20210610
  Receipt Date: 20210610
  Transmission Date: 20210717
  Serious: Yes (Death, Other)
  Sender: FDA-Public Use
  Company Number: GB-GILEAD-2021-0535179

PATIENT
  Age: 63 Year
  Sex: Male

DRUGS (1)
  1. YESCARTA [Suspect]
     Active Substance: AXICABTAGENE CILOLEUCEL
     Indication: DIFFUSE LARGE B-CELL LYMPHOMA
     Dosage: UNK
     Route: 042
     Dates: start: 20210407, end: 20210407

REACTIONS (4)
  - Cardiorenal syndrome [Unknown]
  - Diffuse large B-cell lymphoma [Fatal]
  - Respiratory tract infection fungal [Unknown]
  - Immune effector cell-associated neurotoxicity syndrome [Unknown]
